FAERS Safety Report 7290060-5 (Version None)
Quarter: 2011Q1

REPORT INFORMATION
  Report Type: 
  Country: None (occurrence: None)
  Receive Date: 20110214
  Receipt Date: 20110210
  Transmission Date: 20110831
  Serious: Yes (Hospitalization)
  Sender: FDA-Public Use
  Company Number: FR-SANOFI-AVENTIS-2011SA008758

PATIENT
  Age: 72 Year
  Sex: Male

DRUGS (6)
  1. AZACITIDINE [Concomitant]
     Route: 065
     Dates: start: 20101122, end: 20101129
  2. CLAFORAN [Suspect]
     Route: 042
     Dates: start: 20101208, end: 20101214
  3. CIFLOX [Suspect]
     Route: 042
     Dates: start: 20101208, end: 20101209
  4. VANCOMYCINE [Suspect]
     Route: 042
     Dates: start: 20101209, end: 20101224
  5. FLAGYL [Suspect]
     Route: 048
     Dates: start: 20101209, end: 20101222
  6. GENTAMICIN [Suspect]
     Route: 042
     Dates: start: 20101209, end: 20101224

REACTIONS (1)
  - PYODERMA GANGRENOSUM [None]
